FAERS Safety Report 6830650-4 (Version None)
Quarter: 2010Q3

REPORT INFORMATION
  Report Type: 
  Country: None (occurrence: None)
  Receive Date: 20100709
  Receipt Date: 20100709
  Transmission Date: 20110219
  Serious: Yes (Other)
  Sender: FDA-Public Use
  Company Number: None

PATIENT
  Age: 14 Month
  Sex: Male
  Weight: 9.9791 kg

DRUGS (1)
  1. AVEENO BABY SPF 55 SUNBLOCK LOTION [Suspect]
     Dosage: USED A HANDFUL ON ARMS AND LEGS

REACTIONS (2)
  - BURNING SENSATION [None]
  - PAIN OF SKIN [None]
